FAERS Safety Report 8579015-8 (Version None)
Quarter: 2012Q3

REPORT INFORMATION
  Report Type: 
  Country: None (occurrence: None)
  Receive Date: 20120808
  Receipt Date: 20120730
  Transmission Date: 20120928
  Serious: Yes (Other)
  Sender: FDA-Public Use
  Company Number: CA-JNJFOC-20120700273

PATIENT
  Sex: Female
  Weight: 59 kg

DRUGS (9)
  1. HYDROCORTISONE [Concomitant]
     Indication: PREMEDICATION
     Route: 042
  2. ACETAMINOPHEN [Concomitant]
     Indication: PREMEDICATION
     Route: 048
  3. LIPITOR [Concomitant]
     Route: 048
  4. NORVASC [Concomitant]
     Indication: HYPERTENSION
     Route: 048
  5. OMEPRAZOLE [Concomitant]
     Indication: GASTROOESOPHAGEAL REFLUX DISEASE
     Route: 048
  6. CALCIUM [Concomitant]
     Route: 048
  7. VITAMIN D [Concomitant]
     Route: 048
  8. REMICADE [Suspect]
     Indication: RHEUMATOID ARTHRITIS
     Route: 042
     Dates: start: 20000725, end: 20120515
  9. TYLENOL [Concomitant]
     Dosage: AS NEEDED
     Route: 048

REACTIONS (2)
  - URINARY TRACT INFECTION [None]
  - NEPHROLITHIASIS [None]
